FAERS Safety Report 5486466-7 (Version None)
Quarter: 2007Q4

REPORT INFORMATION
  Report Type: 
  Country: None (occurrence: None)
  Receive Date: 20071016
  Receipt Date: 20071005
  Transmission Date: 20080405
  Serious: Yes (Other)
  Sender: FDA-Public Use
  Company Number: B0483208A

PATIENT
  Age: 57 Year
  Sex: Male

DRUGS (3)
  1. PAXIL [Suspect]
     Indication: DEPRESSION
     Dosage: 10MG PER DAY
     Route: 048
  2. UNKNOWN NAME [Concomitant]
  3. REBETOL [Concomitant]
     Indication: HEPATITIS C
     Route: 048

REACTIONS (3)
  - APATHY [None]
  - HYPOTHYROIDISM [None]
  - RHEUMATOID LUNG [None]
